FAERS Safety Report 4710263-0 (Version None)
Quarter: 2005Q3

REPORT INFORMATION
  Report Type: 
  Country: None (occurrence: None)
  Receive Date: 20050711
  Receipt Date: 20050628
  Transmission Date: 20060218
  Serious: Yes (Other)
  Sender: FDA-Public Use
  Company Number: US-JNJFOC-20050607576

PATIENT
  Sex: Female
  Weight: 77.11 kg

DRUGS (12)
  1. REMICADE [Suspect]
     Route: 042
  2. REMICADE [Suspect]
     Indication: RHEUMATOID ARTHRITIS
     Dosage: FIRST INFUSION
     Route: 042
  3. ARAVA [Concomitant]
  4. MOBIC [Concomitant]
  5. PREDNISONE TAB [Concomitant]
  6. AMITRIPTYLINE HCL [Concomitant]
  7. ENALOPRIL [Concomitant]
  8. SYNTHROID [Concomitant]
  9. AVANDIA [Concomitant]
  10. NEURONTIN [Concomitant]
  11. LIPITOR [Concomitant]
  12. MIRALAX [Concomitant]

REACTIONS (3)
  - DYSPNOEA [None]
  - OXYGEN SATURATION DECREASED [None]
  - PULMONARY FIBROSIS [None]
